FAERS Safety Report 4662628-3 (Version None)
Quarter: 2005Q2

REPORT INFORMATION
  Report Type: 
  Country: None (occurrence: None)
  Receive Date: 20050513
  Receipt Date: 20050513
  Transmission Date: 20051028
  Serious: No
  Sender: FDA-Public Use
  Company Number: None

PATIENT
  Age: 59 Year
  Sex: Male
  Weight: 60 kg

DRUGS (1)
  1. TAXOL [Suspect]
     Dosage: TAXOL   301MG OVER 3 H    INTRAVENOU
     Route: 042
     Dates: start: 20050208, end: 20050208

REACTIONS (2)
  - CHEST PAIN [None]
  - INFUSION RELATED REACTION [None]
